FAERS Safety Report 14208156 (Version 1)
Quarter: 2017Q4

REPORT INFORMATION
  Report Type: Spontaneous
  Country: US (occurrence: US)
  Receive Date: 20171120
  Receipt Date: 20171120
  Transmission Date: 20180321
  Serious: Yes (Disabling)
  Sender: FDA-Public Use
  Company Number: None

PATIENT
  Sex: Female
  Weight: 103.5 kg

DRUGS (1)
  1. KENALOG [Suspect]
     Active Substance: TRIAMCINOLONE ACETONIDE
     Indication: INFLAMMATION
     Dosage: ?          QUANTITY:1 INJECTION(S);OTHER FREQUENCY:1 TIME;?
     Route: 030

REACTIONS (2)
  - Tachycardia [None]
  - Myopathy [None]

NARRATIVE: CASE EVENT DATE: 20160607
